FAERS Safety Report 14008547 (Version 1)
Quarter: 2017Q3

REPORT INFORMATION
  Report Type: Spontaneous
  Country: CN (occurrence: CN)
  Receive Date: 20170925
  Receipt Date: 20170925
  Transmission Date: 20171128
  Serious: Yes (Death)
  Sender: FDA-Public Use
  Company Number: CN-PFIZER INC-2017410344

PATIENT
  Age: 50 Year
  Sex: Female

DRUGS (4)
  1. MORPHINE [Concomitant]
     Active Substance: MORPHINE
     Indication: PAIN
     Dosage: 1 DF, 2X/DAY
     Route: 048
  2. XALKORI [Suspect]
     Active Substance: CRIZOTINIB
     Dosage: 1 DF (CAPSULE), 2X/DAY
     Route: 048
     Dates: start: 20170912
  3. XALKORI [Suspect]
     Active Substance: CRIZOTINIB
     Indication: LUNG NEOPLASM MALIGNANT
     Dosage: 1 DF (CAPSULE), DAILY
     Route: 048
     Dates: start: 20170911
  4. XALKORI [Suspect]
     Active Substance: CRIZOTINIB
     Dosage: 1 DF (CAPSULE), DAILY
     Route: 048
     Dates: start: 20170913, end: 20170914

REACTIONS (2)
  - Pain in extremity [Unknown]
  - Depressed level of consciousness [Fatal]

NARRATIVE: CASE EVENT DATE: 20170912
